FAERS Safety Report 7996097-2 (Version None)
Quarter: 2011Q4

REPORT INFORMATION
  Report Type: 
  Country: None (occurrence: None)
  Receive Date: 20111220
  Receipt Date: 20111212
  Transmission Date: 20120403
  Serious: Yes (Death, Other)
  Sender: FDA-Public Use
  Company Number: PHHY2011NL55022

PATIENT
  Sex: Female
  Weight: 69 kg

DRUGS (16)
  1. FRAGMIN [Concomitant]
     Dosage: 15000 UKN, UNK
  2. ZOMETA [Suspect]
     Indication: LUNG CANCER METASTATIC
     Dosage: 4 MG, EVERY 28 DAYS IN 20 MINUTES
     Dates: start: 20110303, end: 20110815
  3. SYMBICORT [Concomitant]
  4. SYMBICORT [Concomitant]
  5. ZOPICLONE [Concomitant]
  6. ALPRAZ [Concomitant]
  7. OXYCODONE HCL [Concomitant]
  8. OXYCODONE HCL [Concomitant]
  9. ACETAMINOPHEN [Concomitant]
  10. FENTANYL [Concomitant]
  11. ZOMETA [Suspect]
     Dosage: 4 MG, EVERY 28 DAYS IN 20 MINUTES
     Dates: start: 20110526
  12. MOVICOLON [Concomitant]
  13. ALPRAZOLAM [Concomitant]
  14. PANTOPRAZOLE SODIUM [Concomitant]
  15. OXYCONTIN [Concomitant]
  16. ZOMETA [Suspect]
     Dosage: 4 MG, EVERY 28 DAYS IN 20 MINUTES
     Dates: start: 20110621

REACTIONS (9)
  - FEELING ABNORMAL [None]
  - METASTASES TO ADRENALS [None]
  - PALLIATIVE CARE [None]
  - NEOPLASM MALIGNANT [None]
  - METASTASES TO BONE [None]
  - METASTASES TO BREAST [None]
  - BONE PAIN [None]
  - DRUG EFFECT DECREASED [None]
  - NEOPLASM PROGRESSION [None]
